FAERS Safety Report 5818156-2 (Version None)
Quarter: 2008Q3

REPORT INFORMATION
  Report Type: 
  Country: None (occurrence: None)
  Receive Date: 20080716
  Receipt Date: 20080701
  Transmission Date: 20090109
  Serious: Yes (Death)
  Sender: FDA-Public Use
  Company Number: TNZFR200800113

PATIENT
  Age: 77 Year
  Sex: Female

DRUGS (13)
  1. INNOHEP [Suspect]
     Indication: THROMBOSIS PROPHYLAXIS
     Dosage: (4500 IU), SUBCUTANEOUS
     Route: 058
     Dates: start: 20080625, end: 20080629
  2. INNOHEP [Suspect]
  3. INNOHEP [Suspect]
  4. INNOHEP [Suspect]
  5. FORLAX (MACROGOL) [Concomitant]
  6. ARIMIDEX [Concomitant]
  7. PAROXETINE HCL [Concomitant]
  8. ZOCOR [Concomitant]
  9. NOROXIN [Concomitant]
  10. IMOVANE (ZOPICLONE) [Concomitant]
  11. SPASFON-LYOC (PHYLOROGLUCINOL) [Concomitant]
  12. CORTANCYL (PREDNISONE) [Concomitant]
  13. MOPRAL (OMEPRAZOLE) [Concomitant]

REACTIONS (2)
  - STREPTOCOCCAL SEPSIS [None]
  - THROMBOCYTOPENIA [None]
